FAERS Safety Report 8565227 (Version 2)
Quarter: 2012Q4

REPORT INFORMATION
  Report Type: 
  Country: FR (occurrence: FR)
  Receive Date: 20120516
  Receipt Date: 20120903
  Transmission Date: 20130627
  Serious: Yes (Hospitalization, Other)
  Sender: FDA-Public Use
  Company Number: FR-BRISTOL-MYERS SQUIBB COMPANY-16580920

PATIENT
  Age: 79 Year
  Sex: Female

DRUGS (12)
  1. ORENCIA FOR INJ [Suspect]
     Indication: RHEUMATOID ARTHRITIS
     Dosage: Recent administration:23Mar12
In voider 11Oct2010
     Dates: start: 20101011, end: 20120323
  2. METOJECT [Suspect]
     Indication: RHEUMATOID ARTHRITIS
     Route: 048
     Dates: start: 1998, end: 201204
  3. REMICADE [Suspect]
     Indication: RHEUMATOID ARTHRITIS
     Route: 042
     Dates: start: 2002, end: 201006
  4. ENBREL [Suspect]
     Indication: RHEUMATOID ARTHRITIS
     Route: 058
     Dates: start: 201006, end: 201010
  5. CORTANCYL [Concomitant]
     Dosage: 2.5 mg to 5 mg/d
  6. FLUDEX [Concomitant]
     Dosage: Fludex LP
  7. FLECAINE [Concomitant]
     Dosage: Flecaine LP
  8. EUPANTOL [Concomitant]
  9. LEVOTHYROX [Concomitant]
  10. ZOLPIDEM [Concomitant]
  11. PERINDOPRIL [Concomitant]
  12. PREDNISONE [Concomitant]

REACTIONS (4)
  - Acute myeloid leukaemia [Recovered/Resolved with Sequelae]
  - Cardiac failure [Not Recovered/Not Resolved]
  - Lung disorder [Not Recovered/Not Resolved]
  - Cerebrovascular accident [Not Recovered/Not Resolved]
